FAERS Safety Report 12123093 (Version 1)
Quarter: 2016Q1

REPORT INFORMATION
  Report Type: Spontaneous
  Country: FR (occurrence: FR)
  Receive Date: 20160227
  Receipt Date: 20160227
  Transmission Date: 20160526
  Serious: Yes (Death)
  Sender: FDA-Public Use
  Company Number: FR-ABBVIE-16K-056-1568281-00

PATIENT
  Age: 27 Year
  Sex: Male

DRUGS (1)
  1. HUMIRA [Suspect]
     Active Substance: ADALIMUMAB
     Indication: ANKYLOSING SPONDYLITIS
     Route: 058
     Dates: start: 201004, end: 201511

REACTIONS (3)
  - Dyspnoea [Unknown]
  - Hodgkin^s disease lymphocyte predominance type stage IV [Fatal]
  - Dysphagia [Unknown]

NARRATIVE: CASE EVENT DATE: 201601
